FAERS Safety Report 25299107 (Version 1)
Quarter: 2025Q2

REPORT INFORMATION
  Report Type: Spontaneous
  Country: NL (occurrence: NL)
  Receive Date: 20250512
  Receipt Date: 20250512
  Transmission Date: 20250717
  Serious: Yes (Other)
  Sender: AUROBINDO
  Company Number: NL-LRB-01055154

PATIENT
  Age: 35 Year
  Sex: Female
  Weight: 98 kg

DRUGS (3)
  1. SERTRALINE HYDROCHLORIDE [Suspect]
     Active Substance: SERTRALINE HYDROCHLORIDE
     Indication: Depression
     Dosage: 50 MILLIGRAM, ONCE A DAY (1 DD 1)
     Route: 048
     Dates: start: 20150101
  2. ESTRADIOL [Suspect]
     Active Substance: ESTRADIOL
     Indication: Menopausal symptoms
     Dosage: 1 DOSAGE FORM, ONCE A DAY (1 PUMP ONCE A DAY)
     Route: 062
     Dates: start: 20250204
  3. OXCARBAZEPINE [Suspect]
     Active Substance: OXCARBAZEPINE
     Indication: Epilepsy
     Dosage: 300 MILLIGRAM, TWO TIMES A DAY (2 DD 1)
     Route: 048
     Dates: start: 20050101

REACTIONS (3)
  - Epilepsy [Unknown]
  - Petit mal epilepsy [Unknown]
  - Skin hyperpigmentation [Unknown]
